FAERS Safety Report 8290082-1 (Version None)
Quarter: 2012Q2

REPORT INFORMATION
  Report Type: 
  Country: None (occurrence: None)
  Receive Date: 20120417
  Receipt Date: 20110728
  Transmission Date: 20120825
  Serious: Yes (Other)
  Sender: FDA-Public Use
  Company Number: JP-PFIZER INC-2011127206

PATIENT
  Age: 76 Year
  Sex: Male

DRUGS (4)
  1. AMLODIPINE [Suspect]
     Indication: HYPERTENSION
     Dosage: 2.5 MG, 1X/DAY
     Route: 048
     Dates: start: 20110128, end: 20110523
  2. MYONAL [Suspect]
     Route: 048
  3. LOXONIN [Suspect]
  4. VITAMIN B12 [Suspect]

REACTIONS (1)
  - HYPOGLYCAEMIA [None]
